FAERS Safety Report 22164356 (Version 2)
Quarter: 2023Q2

REPORT INFORMATION
  Report Type: Spontaneous
  Country: ES (occurrence: ES)
  Receive Date: 20230403
  Receipt Date: 20230412
  Transmission Date: 20230721
  Serious: Yes (Other)
  Sender: FDA-Public Use
  Company Number: ES-002147023-NVSC2023ES073604

PATIENT
  Sex: Female

DRUGS (2)
  1. HYRIMOZ [Suspect]
     Active Substance: ADALIMUMAB-ADAZ
     Indication: Rheumatoid arthritis
     Dosage: 40 MG, Q2W (40 MG / 0.8 ML)
     Route: 058
     Dates: start: 20230204
  2. ARAVA [Concomitant]
     Active Substance: LEFLUNOMIDE
     Indication: Product used for unknown indication
     Dosage: 5 MG, QD (USING IT FOR ABOUT 2 YEARS)
     Route: 065

REACTIONS (10)
  - Monoplegia [Recovered/Resolved]
  - Nervousness [Unknown]
  - Crying [Unknown]
  - Skin plaque [Unknown]
  - Joint stiffness [Unknown]
  - Pain [Unknown]
  - Arthralgia [Recovered/Resolved]
  - Inflammation [Unknown]
  - Erythema [Recovered/Resolved]
  - Anxiety [Unknown]

NARRATIVE: CASE EVENT DATE: 20230318
